FAERS Safety Report 17369564 (Version 3)
Quarter: 2020Q2

REPORT INFORMATION
  Report Type: Report from Study
  Country: US (occurrence: US)
  Receive Date: 20200204
  Receipt Date: 20200618
  Transmission Date: 20200713
  Serious: No
  Sender: FDA-Public Use
  Company Number: US-DSJP-DSU-2020-103426

PATIENT

DRUGS (2)
  1. PEXIDARTINIB [Suspect]
     Active Substance: PEXIDARTINIB
     Indication: SYNOVITIS
     Dosage: 200 MG, BID
     Route: 048
     Dates: start: 20200118
  2. PEXIDARTINIB [Suspect]
     Active Substance: PEXIDARTINIB
     Dosage: 200 MG IN QAM AND 400 MG IN QPM
     Route: 048
     Dates: start: 20200118

REACTIONS (8)
  - Influenza like illness [Unknown]
  - Ill-defined disorder [Unknown]
  - Blood bilirubin increased [Unknown]
  - Off label use [Unknown]
  - Disease progression [Unknown]
  - White blood cell count decreased [Recovered/Resolved]
  - Sinusitis [Unknown]
  - Aspartate aminotransferase increased [Unknown]

NARRATIVE: CASE EVENT DATE: 2020
